FAERS Safety Report 19648546 (Version 1)
Quarter: 2021Q3

REPORT INFORMATION
  Report Type: Spontaneous
  Country: US (occurrence: US)
  Receive Date: 20210802
  Receipt Date: 20210802
  Transmission Date: 20211014
  Serious: No
  Sender: FDA-Public Use
  Company Number: US-SA-2021SA252700

PATIENT
  Sex: Female

DRUGS (9)
  1. TACROLIMUS. [Concomitant]
     Active Substance: TACROLIMUS
  2. FLUOCORTOLONE CAPROATE. [Concomitant]
     Active Substance: FLUOCORTOLONE CAPROATE
  3. NORETHINDRONE [NORETHISTERONE] [Concomitant]
     Active Substance: NORETHINDRONE
  4. DESONIDE. [Concomitant]
     Active Substance: DESONIDE
  5. FLUOXETINE HCL [Concomitant]
     Active Substance: FLUOXETINE HYDROCHLORIDE
  6. SHAROBEL [Concomitant]
     Active Substance: NORETHINDRONE
  7. PFIZER?BIONTECH COVID?19 VACCINE [Concomitant]
     Active Substance: TOZINAMERAN
  8. DUPIXENT [Suspect]
     Active Substance: DUPILUMAB
     Indication: DERMATITIS ATOPIC
     Dosage: 300 MG, QOW
     Route: 058
  9. EUCRISA [Concomitant]
     Active Substance: CRISABOROLE

REACTIONS (2)
  - Emotional disorder [Unknown]
  - Panic attack [Unknown]
